FAERS Safety Report 6691538-5 (Version None)
Quarter: 2010Q2

REPORT INFORMATION
  Report Type: 
  Country: None (occurrence: None)
  Receive Date: 20100422
  Receipt Date: 20100419
  Transmission Date: 20101027
  Serious: Yes (Hospitalization)
  Sender: FDA-Public Use
  Company Number: FR-SANOFI-AVENTIS-2010SA018155

PATIENT
  Age: 47 Year
  Sex: Female

DRUGS (25)
  1. LOVENOX [Suspect]
     Route: 058
     Dates: start: 20100220, end: 20100226
  2. AMOXICILLIN AND CLAVULANATE POTASSIUM [Suspect]
     Route: 042
     Dates: start: 20100219, end: 20100224
  3. OMEPRAZOLE [Suspect]
     Route: 042
     Dates: start: 20100219, end: 20100302
  4. CANCIDAS [Suspect]
     Route: 042
     Dates: start: 20100222, end: 20100225
  5. SUFENTA PRESERVATIVE FREE [Suspect]
     Route: 042
     Dates: start: 20100219, end: 20100302
  6. NIMBEX [Suspect]
     Route: 042
     Dates: start: 20100222, end: 20100224
  7. VECTARION [Suspect]
     Route: 042
     Dates: start: 20100222, end: 20100224
  8. KETAMINE HCL [Suspect]
     Route: 042
     Dates: start: 20100219, end: 20100219
  9. HUMAN ACTRAPID [Suspect]
     Route: 065
     Dates: start: 20100219, end: 20100219
  10. ROCURONIUM BROMIDE [Suspect]
     Route: 042
     Dates: start: 20100219, end: 20100219
  11. TRACRIUM [Suspect]
     Route: 042
     Dates: start: 20100219, end: 20100219
  12. HYPNOVEL [Suspect]
     Route: 042
     Dates: start: 20100219, end: 20100219
  13. EPHEDRINE [Suspect]
     Route: 042
     Dates: start: 20100219, end: 20100219
  14. PROPOFOL [Suspect]
     Route: 042
     Dates: start: 20100219, end: 20100302
  15. ACUPAN [Suspect]
     Route: 042
     Dates: start: 20100220, end: 20100221
  16. HUMALOG [Suspect]
     Route: 058
     Dates: start: 20100219
  17. ATARAX [Suspect]
     Route: 042
     Dates: start: 20100220, end: 20100220
  18. GENTALLINE [Suspect]
     Route: 042
     Dates: start: 20100222, end: 20100223
  19. METFORMIN HCL [Concomitant]
     Route: 048
  20. PRAVASTATIN [Concomitant]
     Route: 048
  21. ANAFRANIL [Concomitant]
     Route: 048
  22. LARGACTIL [Concomitant]
     Route: 048
  23. ACTIBIL [Concomitant]
     Route: 048
  24. TARDYFERON /GFR/ [Concomitant]
     Route: 048
  25. TAZOCILLINE [Concomitant]
     Route: 065
     Dates: start: 20100227, end: 20100302

REACTIONS (1)
  - STEVENS-JOHNSON SYNDROME [None]
